FAERS Safety Report 15756388 (Version 2)
Quarter: 2018Q4

REPORT INFORMATION
  Report Type: Report from Study
  Country: US (occurrence: US)
  Receive Date: 20181224
  Receipt Date: 20181227
  Transmission Date: 20190205
  Serious: No
  Sender: FDA-Public Use
  Company Number: US-BRISTOL-MYERS SQUIBB COMPANY-BMS-2018-120934

PATIENT
  Sex: Male

DRUGS (1)
  1. NIVOLUMAB [Suspect]
     Active Substance: NIVOLUMAB
     Indication: HEPATOCELLULAR CARCINOMA
     Dosage: 480 MG, Q4WK
     Route: 042
     Dates: start: 20180822

REACTIONS (10)
  - Constipation [Unknown]
  - Gingival pain [Unknown]
  - Rash pustular [Unknown]
  - Fatigue [Unknown]
  - Muscular weakness [Unknown]
  - Musculoskeletal pain [Unknown]
  - Dry skin [Unknown]
  - Adverse event [Unknown]
  - Asthenia [Unknown]
  - Respiration abnormal [Unknown]
